FAERS Safety Report 21882870 (Version 2)
Quarter: 2023Q1

REPORT INFORMATION
  Report Type: Spontaneous
  Country: US (occurrence: US)
  Receive Date: 20230119
  Receipt Date: 20230208
  Transmission Date: 20230417
  Serious: No
  Sender: FDA-Public Use
  Company Number: US-LUPIN PHARMACEUTICALS INC.-2023-00284

PATIENT

DRUGS (7)
  1. QUINAPRIL [Suspect]
     Active Substance: QUINAPRIL
     Indication: Hypertension
     Dosage: UNK, QD
     Route: 065
  2. QUINAPRIL [Suspect]
     Active Substance: QUINAPRIL
     Dosage: UNK (ANOTHER BROWN BOTTLE)
     Route: 065
  3. HYDROCHLOROTHIAZIDE [Concomitant]
     Active Substance: HYDROCHLOROTHIAZIDE
     Indication: Blood pressure abnormal
     Dosage: UNK
     Route: 065
  4. ATORVASTATIN [Concomitant]
     Active Substance: ATORVASTATIN
     Indication: Blood cholesterol abnormal
     Dosage: UNK
     Route: 065
  5. MUCOLAX [Concomitant]
     Indication: Asthma
     Dosage: UNK
     Route: 065
  6. AZELASTINE [Concomitant]
     Active Substance: AZELASTINE
     Indication: Product used for unknown indication
     Dosage: UNK
     Route: 065
  7. AMOXICILLIN [Concomitant]
     Active Substance: AMOXICILLIN
     Indication: Knee arthroplasty
     Dosage: 2000 MILLIGRAM
     Route: 065

REACTIONS (2)
  - Recalled product administered [Unknown]
  - No adverse event [Unknown]
